FAERS Safety Report 18122075 (Version 2)
Quarter: 2020Q3

REPORT INFORMATION
  Report Type: Spontaneous
  Country: CA (occurrence: CA)
  Receive Date: 20200807
  Receipt Date: 20200817
  Transmission Date: 20201103
  Serious: Yes (Hospitalization)
  Sender: FDA-Public Use
  Company Number: CA-ACCORD-194572

PATIENT
  Age: 83 Year
  Sex: Female

DRUGS (31)
  1. GABAPENTIN. [Suspect]
     Active Substance: GABAPENTIN
     Indication: PRODUCT USED FOR UNKNOWN INDICATION
     Route: 048
  2. ACTEMRA [Suspect]
     Active Substance: TOCILIZUMAB
     Indication: RHEUMATOID ARTHRITIS
     Dosage: FREQUENCY: 1 EVERY 1 MONTHS
     Route: 042
  3. SULFASALAZINE. [Suspect]
     Active Substance: SULFASALAZINE
     Indication: RHEUMATOID ARTHRITIS
     Dosage: FREQUENCY: 1 EVERY 24 HOURS
     Route: 048
  4. TRAZODONE [Concomitant]
     Active Substance: TRAZODONE HYDROCHLORIDE
  5. NORTRIPTYLINE [Concomitant]
     Active Substance: NORTRIPTYLINE
  6. OXYCONTIN [Suspect]
     Active Substance: OXYCODONE HYDROCHLORIDE
     Indication: PRODUCT USED FOR UNKNOWN INDICATION
  7. NASONEX [Concomitant]
     Active Substance: MOMETASONE FUROATE
     Dosage: DOSAGE FORM: SPRAY, METERED DOSE
  8. LOPERAMIDE [Concomitant]
     Active Substance: LOPERAMIDE
  9. IRON [Concomitant]
     Active Substance: IRON
  10. GABAPENTIN. [Suspect]
     Active Substance: GABAPENTIN
     Indication: PRODUCT USED FOR UNKNOWN INDICATION
     Dosage: 2 EVERY 1 DAYS
     Route: 048
  11. TRAZODONE [Concomitant]
     Active Substance: TRAZODONE HYDROCHLORIDE
  12. ESOMEPRAZOLE. [Concomitant]
     Active Substance: ESOMEPRAZOLE MAGNESIUM
  13. ENBREL [Suspect]
     Active Substance: ETANERCEPT
     Indication: RHEUMATOID ARTHRITIS
     Dosage: FREQUENCY: 1 EVERY 1 WEEKS
  14. PERPHENAZINE. [Concomitant]
     Active Substance: PERPHENAZINE
  15. ERGOCALCIFEROL. [Concomitant]
     Active Substance: ERGOCALCIFEROL
  16. MYOCHRYSINE [Suspect]
     Active Substance: GOLD SODIUM THIOMALATE
     Indication: RHEUMATOID ARTHRITIS
     Dosage: FREQUENCY:1 EVERY 3 WEEKS
     Route: 030
  17. PREDNISONE. [Concomitant]
     Active Substance: PREDNISONE
  18. LOMOTIL [Concomitant]
     Active Substance: ATROPINE SULFATE\DIPHENOXYLATE HYDROCHLORIDE
  19. METHOTREXATE. [Suspect]
     Active Substance: METHOTREXATE
     Indication: RHEUMATOID ARTHRITIS
     Dosage: FREQUENCY: 1 EVERY 1 WEEKS
     Route: 058
  20. CELEBREX [Suspect]
     Active Substance: CELECOXIB
     Indication: ARTHRITIS
     Route: 048
  21. RISEDRONIC ACID [Concomitant]
     Active Substance: RISEDRONIC ACID
  22. PANTOPRAZOLE [Concomitant]
     Active Substance: PANTOPRAZOLE
  23. OMEGA 3 [Concomitant]
     Active Substance: OMEGA-3 FATTY ACIDS
  24. HYDROXYCHLOROQUINE [Suspect]
     Active Substance: HYDROXYCHLOROQUINE
     Indication: RHEUMATOID ARTHRITIS
     Dosage: FREQUENCY: 1 EVERY 24 HOURS
  25. TYLENOL [Concomitant]
     Active Substance: ACETAMINOPHEN
  26. ACLASTA [Concomitant]
     Active Substance: ZOLEDRONIC ACID
     Dosage: DOSAGE FORM: POWDER FOR SOLUTION INTRAVENOUS
     Route: 042
  27. FENTANYL. [Suspect]
     Active Substance: FENTANYL
     Indication: RHEUMATOID ARTHRITIS
  28. NORTRIPTYLINE [Suspect]
     Active Substance: NORTRIPTYLINE
     Indication: PRODUCT USED FOR UNKNOWN INDICATION
     Route: 048
  29. ORENCIA [Suspect]
     Active Substance: ABATACEPT
     Indication: RHEUMATOID ARTHRITIS
     Dosage: FREQUENCY: 1 EVERY 1 MONTHS
     Route: 067
  30. OXYCODONE [Concomitant]
     Active Substance: OXYCODONE
  31. MYOCHRYSINE [Suspect]
     Active Substance: GOLD SODIUM THIOMALATE
     Indication: RHEUMATOID ARTHRITIS
     Dosage: FREQUENCY:1 EVERY 3 WEEKS
     Route: 030

REACTIONS (25)
  - Deafness neurosensory [Unknown]
  - Epigastric discomfort [Unknown]
  - Presbyacusis [Unknown]
  - Blood creatine increased [Unknown]
  - Blood magnesium increased [Unknown]
  - Drug hypersensitivity [Unknown]
  - Sleep disorder [Unknown]
  - Blood potassium increased [Unknown]
  - Osteopenia [Unknown]
  - Fatigue [Unknown]
  - Infection [Unknown]
  - Blood creatinine increased [Unknown]
  - Drug intolerance [Unknown]
  - Gastrointestinal disorder [Unknown]
  - Nausea [Unknown]
  - Pleural thickening [Unknown]
  - Cyst [Unknown]
  - Osteoarthritis [Unknown]
  - Renal impairment [Unknown]
  - Diarrhoea [Unknown]
  - Drug ineffective [Unknown]
  - Dry eye [Unknown]
  - Pleural fibrosis [Unknown]
  - Skin lesion [Unknown]
  - Treatment failure [Unknown]
